FAERS Safety Report 8911254 (Version 1)
Quarter: 2012Q4

REPORT INFORMATION
  Report Type: 
  Country: US (occurrence: US)
  Receive Date: 20121116
  Receipt Date: 20121116
  Transmission Date: 20130627
  Serious: No
  Sender: FDA-Public Use
  Company Number: US-GLAXOSMITHKLINE-A0993886A

PATIENT
  Age: 62 Year
  Sex: Male

DRUGS (13)
  1. VOTRIENT [Suspect]
     Indication: PRODUCT USED FOR UNKNOWN INDICATION
     Dosage: 800MG Per day
     Route: 048
     Dates: start: 20120904
  2. MORPHINE [Concomitant]
  3. PROVENTIL [Concomitant]
  4. SYMBICORT [Concomitant]
  5. FLOMAX [Concomitant]
  6. ZETIA [Concomitant]
  7. PROSCAR [Concomitant]
  8. ATENOLOL [Concomitant]
  9. NEXIUM [Concomitant]
  10. BACTRIM [Concomitant]
  11. CLOTRIMAZOLE [Concomitant]
  12. PREDNISONE [Concomitant]
  13. MYFORTIC [Concomitant]

REACTIONS (2)
  - Nausea [Unknown]
  - Regurgitation [Unknown]
